FAERS Safety Report 18928608 (Version 1)
Quarter: 2021Q1

REPORT INFORMATION
  Report Type: Spontaneous
  Country: US (occurrence: US)
  Receive Date: 20210223
  Receipt Date: 20210223
  Transmission Date: 20210420
  Serious: No
  Sender: FDA-Public Use
  Company Number: US-KYOWAKIRIN-2021BKK002672

PATIENT

DRUGS (1)
  1. NOURIANZ [Suspect]
     Active Substance: ISTRADEFYLLINE
     Indication: PARKINSON^S DISEASE
     Dosage: 40 MG, QD
     Route: 048
     Dates: start: 20200820

REACTIONS (3)
  - Dizziness [Unknown]
  - Muscular weakness [Unknown]
  - Constipation [Unknown]

NARRATIVE: CASE EVENT DATE: 202101
